FAERS Safety Report 5065834-1 (Version None)
Quarter: 2006Q3

REPORT INFORMATION
  Report Type: 
  Country: None (occurrence: None)
  Receive Date: 20060727
  Receipt Date: 20060713
  Transmission Date: 20061208
  Serious: Yes (Hospitalization)
  Sender: FDA-Public Use
  Company Number: 2006PV017470

PATIENT
  Age: 79 Year
  Sex: Male
  Weight: 75.7507 kg

DRUGS (9)
  1. BYETTA [Suspect]
     Indication: DIABETES MELLITUS NON-INSULIN-DEPENDENT
     Dosage: 5 MCG, BID; SC, 5 MCG, QD, SC
     Dates: start: 20060606, end: 20060612
  2. BYETTA [Suspect]
     Indication: DIABETES MELLITUS NON-INSULIN-DEPENDENT
     Dosage: 5 MCG, BID; SC, 5 MCG, QD, SC
     Dates: start: 20060613
  3. TOPROL-XL [Concomitant]
  4. PRANDIN [Concomitant]
  5. NPH INSULIN [Concomitant]
  6. COLACE [Concomitant]
  7. FERROUS SULFATE TAB [Concomitant]
  8. LISINOPRIL [Concomitant]
  9. METFORMIN HCL [Concomitant]

REACTIONS (6)
  - ARTHRALGIA [None]
  - CONDITION AGGRAVATED [None]
  - CONSTIPATION [None]
  - LABORATORY TEST ABNORMAL [None]
  - MUSCULOSKELETAL PAIN [None]
  - MYOCARDIAL INFARCTION [None]
